FAERS Safety Report 9103570 (Version 1)
Quarter: 2013Q1

REPORT INFORMATION
  Report Type: Spontaneous
  Country: FR (occurrence: FR)
  Receive Date: 20130219
  Receipt Date: 20130219
  Transmission Date: 20140127
  Serious: Yes (Hospitalization)
  Sender: FDA-Public Use
  Company Number: FR-GLAXOSMITHKLINE-B0866824A

PATIENT
  Age: 37 Year
  Sex: Male

DRUGS (12)
  1. BETNEVAL [Suspect]
     Indication: PRODUCT USED FOR UNKNOWN INDICATION
     Route: 061
     Dates: start: 200802, end: 201008
  2. CELESTENE [Suspect]
     Indication: PRODUCT USED FOR UNKNOWN INDICATION
     Route: 048
     Dates: start: 200802, end: 201102
  3. SOLUPRED [Suspect]
     Indication: PRODUCT USED FOR UNKNOWN INDICATION
     Route: 048
     Dates: start: 200901, end: 201102
  4. TARGRETIN [Suspect]
     Indication: T-CELL LYMPHOMA
     Dosage: 525MG PER DAY
     Route: 048
     Dates: start: 20101020, end: 20111130
  5. ROFERON [Suspect]
     Indication: T-CELL LYMPHOMA
     Dosage: 3MU THREE TIMES PER WEEK
     Route: 058
     Dates: start: 20110127, end: 20111130
  6. DIPROLENE [Suspect]
     Indication: PRODUCT USED FOR UNKNOWN INDICATION
     Route: 061
     Dates: start: 201010, end: 201101
  7. LOCAPRED [Suspect]
     Indication: PRODUCT USED FOR UNKNOWN INDICATION
     Route: 061
     Dates: start: 200802, end: 200802
  8. DIPROSONE [Suspect]
     Indication: PRODUCT USED FOR UNKNOWN INDICATION
     Route: 061
     Dates: start: 201009, end: 201009
  9. LOCATOP [Suspect]
     Indication: PRODUCT USED FOR UNKNOWN INDICATION
     Route: 061
     Dates: start: 201003, end: 201004
  10. LIPANTHYL [Concomitant]
     Indication: DYSLIPIDAEMIA
     Route: 065
     Dates: start: 201010
  11. SORIATANE [Concomitant]
     Dates: start: 201201
  12. BICNU [Concomitant]
     Indication: T-CELL LYMPHOMA
     Dates: start: 20101208

REACTIONS (1)
  - Osteonecrosis [Not Recovered/Not Resolved]
